FAERS Safety Report 9251679 (Version 3)
Quarter: 2013Q2

REPORT INFORMATION
  Report Type: Spontaneous
  Country: BG (occurrence: BG)
  Receive Date: 20130424
  Receipt Date: 20130605
  Transmission Date: 20140414
  Serious: Yes (Hospitalization, Other)
  Sender: FDA-Public Use
  Company Number: PHHY2013BG038711

PATIENT
  Age: 69 Year
  Sex: Male

DRUGS (5)
  1. SEBIVO [Suspect]
     Indication: CHRONIC HEPATITIS B
     Dosage: 600 MG, DAILY
     Route: 048
     Dates: start: 201207, end: 20130321
  2. FURANTHRIL//FUROSEMIDE [Concomitant]
     Dosage: 0.5 DF, DAILY
     Route: 048
  3. CORONAL//AMIODARONE HYDROCHLORIDE [Concomitant]
     Dosage: 1 DF, DAILY
     Route: 048
  4. EUTHYROX [Concomitant]
     Dosage: 1 DF, DAILY
     Route: 048
  5. DUODOL [Concomitant]
     Dosage: 1 DF, DAILY
     Route: 048

REACTIONS (14)
  - Muscular weakness [Recovering/Resolving]
  - Fatigue [Unknown]
  - Myalgia [Unknown]
  - Gait disturbance [Unknown]
  - Sensation of heaviness [Recovering/Resolving]
  - Myoglobin blood present [Unknown]
  - Muscle spasms [Unknown]
  - Spinal disorder [Recovering/Resolving]
  - Blood creatine phosphokinase abnormal [Unknown]
  - Blood albumin abnormal [Unknown]
  - Urinary casts present [Unknown]
  - Aldolase abnormal [Unknown]
  - Myoglobin urine present [Unknown]
  - Haemoglobin urine present [Unknown]
